FAERS Safety Report 12795892 (Version 4)
Quarter: 2016Q4

REPORT INFORMATION
  Report Type: Spontaneous
  Country: DE (occurrence: DE)
  Receive Date: 20160929
  Receipt Date: 20161018
  Transmission Date: 20170207
  Serious: Yes (Other)
  Sender: FDA-Public Use
  Company Number: DE-JNJFOC-20160927537

PATIENT
  Age: 36 Year
  Sex: Male

DRUGS (1)
  1. XARELTO [Suspect]
     Active Substance: RIVAROXABAN
     Indication: DEEP VEIN THROMBOSIS
     Route: 048
     Dates: start: 2013

REACTIONS (9)
  - Hepatic vein thrombosis [Recovered/Resolved]
  - Pleural effusion [Unknown]
  - Adverse event [Recovered/Resolved]
  - Fibrin D dimer increased [Recovered/Resolved]
  - Ascites [Unknown]
  - Hepatic infarction [Recovered/Resolved]
  - Deep vein thrombosis [Recovered/Resolved]
  - Thrombosis [Unknown]
  - Vena cava thrombosis [Recovered/Resolved]

NARRATIVE: CASE EVENT DATE: 20160919
